FAERS Safety Report 16079621 (Version 9)
Quarter: 2022Q2

REPORT INFORMATION
  Report Type: Spontaneous
  Country: US (occurrence: US)
  Receive Date: 20190315
  Receipt Date: 20220609
  Transmission Date: 20220721
  Serious: Yes (Other)
  Sender: FDA-Public Use
  Company Number: PHHY2018US201587

PATIENT
  Sex: Male
  Weight: 86.3 kg

DRUGS (1)
  1. KYMRIAH [Suspect]
     Active Substance: TISAGENLECLEUCEL
     Indication: Diffuse large B-cell lymphoma refractory
     Dosage: ONCE/SINGLE
     Route: 042
     Dates: start: 20181008, end: 20181008

REACTIONS (2)
  - Acute lymphocytic leukaemia [Unknown]
  - Second primary malignancy [Unknown]
